FAERS Safety Report 9290589 (Version 2)
Quarter: 2013Q2

REPORT INFORMATION
  Report Type: Spontaneous
  Country: US (occurrence: US)
  Receive Date: 20130515
  Receipt Date: 20130528
  Transmission Date: 20140414
  Serious: No
  Sender: FDA-Public Use
  Company Number: US-PFIZER INC-2013148444

PATIENT
  Age: 76 Year
  Sex: Female
  Weight: 63.49 kg

DRUGS (4)
  1. LYRICA [Suspect]
     Indication: DIABETIC NEUROPATHY
     Dosage: 150 MG (TWO CAPSULES OF 75 MG TOGETHER), 1X/DAY
     Route: 048
     Dates: start: 2009, end: 201304
  2. LORAZEPAM [Concomitant]
     Dosage: UNK
  3. VERAPAMIL [Concomitant]
     Dosage: UNK
  4. ZIAC [Concomitant]
     Dosage: UNK

REACTIONS (6)
  - Hot flush [Unknown]
  - Feeling cold [Unknown]
  - Pain in extremity [Unknown]
  - Headache [Unknown]
  - Insomnia [Unknown]
  - Sleep disorder [Unknown]
